FAERS Safety Report 5353422-9 (Version None)
Quarter: 2007Q2

REPORT INFORMATION
  Report Type: 
  Country: None (occurrence: None)
  Receive Date: 20070612
  Receipt Date: 20070531
  Transmission Date: 20071010
  Serious: Yes (Other)
  Sender: FDA-Public Use
  Company Number: PHBS2007JP08730

PATIENT
  Age: 25 Year
  Sex: Male
  Weight: 44 kg

DRUGS (4)
  1. TEGRETOL [Suspect]
     Indication: LENNOX-GASTAUT SYNDROME
     Route: 048
  2. VALPROATE SODIUM [Concomitant]
  3. PHENYTOIN [Concomitant]
  4. CLOBAZAM [Concomitant]

REACTIONS (4)
  - ANOREXIA [None]
  - COLITIS ULCERATIVE [None]
  - DIARRHOEA [None]
  - HAEMATOCHEZIA [None]
